FAERS Safety Report 6165011-7 (Version None)
Quarter: 2009Q2

REPORT INFORMATION
  Report Type: 
  Country: None (occurrence: None)
  Receive Date: 20090421
  Receipt Date: 20090406
  Transmission Date: 20091009
  Serious: Yes (Disabling)
  Sender: FDA-Public Use
  Company Number: 2009S1006142

PATIENT
  Age: 53 Year
  Sex: Female

DRUGS (3)
  1. LAMOTRIGINE [Suspect]
     Indication: CONVULSION
     Dosage: 375 MG;DAILY;ORAL
     Route: 048
  2. CLARITHROMYCIN [Concomitant]
  3. LANSOPRAZOLE [Concomitant]

REACTIONS (3)
  - DYSPEPSIA [None]
  - HYPOGAMMAGLOBULINAEMIA [None]
  - LOWER RESPIRATORY TRACT INFECTION [None]
